FAERS Safety Report 5843376-0 (Version None)
Quarter: 2008Q3

REPORT INFORMATION
  Report Type: 
  Country: None (occurrence: None)
  Receive Date: 20080812
  Receipt Date: 20080812
  Transmission Date: 20090109
  Serious: Yes (Other)
  Sender: FDA-Public Use
  Company Number: None

PATIENT
  Sex: Male

DRUGS (11)
  1. REVLIMID [Suspect]
     Indication: LYMPHOMA
     Dosage: 10MG DAILY 21D/28D PO
     Route: 048
  2. METFORMIN HCL [Concomitant]
  3. COREG [Concomitant]
  4. PROAIR HFA [Concomitant]
  5. LEVOTHROID [Concomitant]
  6. ATENOLOL [Concomitant]
  7. ALLOPURINOL [Concomitant]
  8. FUROSEMIDE [Concomitant]
  9. DARVOCET [Concomitant]
  10. OMEPRAZOLE [Concomitant]
  11. OXYCODONE HCL [Concomitant]

REACTIONS (4)
  - BRONCHITIS [None]
  - COUGH [None]
  - FATIGUE [None]
  - PNEUMONIA [None]
